FAERS Safety Report 26213040 (Version 1)
Quarter: 2025Q4

REPORT INFORMATION
  Report Type: Spontaneous
  Country: US (occurrence: US)
  Receive Date: 20251230
  Receipt Date: 20251230
  Transmission Date: 20260117
  Serious: Yes (Death, Hospitalization)
  Sender: MACLEODS
  Company Number: US-MACLEODS PHARMA-MAC2017006355

PATIENT

DRUGS (4)
  1. LINEZOLID [Suspect]
     Active Substance: LINEZOLID
     Indication: Urinary tract infection staphylococcal
     Dosage: 600 MG, BID
     Route: 065
  2. LINEZOLID [Suspect]
     Active Substance: LINEZOLID
     Indication: Urinary tract infection staphylococcal
  3. GLIMEPIRIDE [Concomitant]
     Active Substance: GLIMEPIRIDE
     Indication: Product used for unknown indication
     Dosage: 1 MG, QD
     Route: 048
  4. Insulin determir [Concomitant]
     Indication: Product used for unknown indication
     Dosage: 40 UNITS EVERY MORNING AND 10 UNITS EVERY EVENING DURING THIS TIME
     Route: 065

REACTIONS (2)
  - Death [Fatal]
  - Hypoglycaemia [Recovered/Resolved]
